FAERS Safety Report 4716549-8 (Version None)
Quarter: 2005Q3

REPORT INFORMATION
  Report Type: 
  Country: None (occurrence: None)
  Receive Date: 20050714
  Receipt Date: 20050523
  Transmission Date: 20060218
  Serious: Yes (Other)
  Sender: FDA-Public Use
  Company Number: 2005BH000605

PATIENT
  Age: 29 Year
  Sex: Female

DRUGS (5)
  1. LACTATED RINGERS INJECTION IN PLATIC CONTAINER (LACTATED RINGERS) [Suspect]
     Dosage: 1000 ML; IV
     Dates: start: 20050427
  2. LACTATED RINGERS INJECTION IN PLATIC CONTAINER (LACTATED RINGERS) [Suspect]
  3. LACTATED RINGERS INJECTION IN PLATIC CONTAINER (LACTATED RINGERS) [Suspect]
  4. TRAMADOL [Concomitant]
  5. RANITIDINE [Concomitant]

REACTIONS (2)
  - INFUSION RELATED REACTION [None]
  - RASH GENERALISED [None]
